FAERS Safety Report 18103886 (Version 1)
Quarter: 2020Q3

REPORT INFORMATION
  Report Type: Spontaneous
  Country: US (occurrence: US)
  Receive Date: 20200801
  Receipt Date: 20200801
  Transmission Date: 20201103
  Serious: Yes (Other)
  Sender: FDA-Public Use
  Company Number: None

PATIENT
  Age: 49 Year
  Sex: Female
  Weight: 85.5 kg

DRUGS (3)
  1. SCENT THEORY ? KEEP CLEAN MOISTURIZING HAND SANITIZER [Suspect]
     Active Substance: ALCOHOL
  2. SYNTHROID [Concomitant]
     Active Substance: LEVOTHYROXINE SODIUM
  3. ASSURED HAND SANITIZER 8OZ [Suspect]
     Active Substance: ALCOHOL
     Indication: INFECTION PROPHYLAXIS
     Route: 061
     Dates: start: 20200310, end: 20200620

REACTIONS (6)
  - Vision blurred [None]
  - Headache [None]
  - Urticaria [None]
  - Vomiting [None]
  - Rash [None]
  - Nausea [None]

NARRATIVE: CASE EVENT DATE: 20200401
